FAERS Safety Report 26109775 (Version 1)
Quarter: 2025Q4

REPORT INFORMATION
  Report Type: Spontaneous
  Country: US (occurrence: US)
  Receive Date: 20251201
  Receipt Date: 20251201
  Transmission Date: 20260118
  Serious: Yes (Other)
  Sender: NANTKWEST
  Company Number: US-NantWorks-2025-US-NANT-00102

PATIENT
  Age: 96 Year
  Sex: Male

DRUGS (2)
  1. ANKTIVA [Suspect]
     Active Substance: NOGAPENDEKIN ALFA INBAKICEPT-PMLN
     Indication: Product used for unknown indication
     Dosage: THERAPY START DATE (400 MCG, WEEKLY)
     Route: 043
     Dates: start: 20251111
  2. ANKTIVA [Suspect]
     Active Substance: NOGAPENDEKIN ALFA INBAKICEPT-PMLN
     Dosage: DATE OF LAST DOSE PRIOR TO ONSET OF EVENT (2 DOSES RECEIVED)
     Route: 043
     Dates: start: 20251118

REACTIONS (3)
  - Haemorrhage urinary tract [Not Recovered/Not Resolved]
  - Pain [Not Recovered/Not Resolved]
  - Haematuria [Not Recovered/Not Resolved]

NARRATIVE: CASE EVENT DATE: 20251118
